FAERS Safety Report 6157254-3 (Version None)
Quarter: 2009Q2

REPORT INFORMATION
  Report Type: 
  Country: None (occurrence: None)
  Receive Date: 20090416
  Receipt Date: 20090410
  Transmission Date: 20091009
  Serious: Yes (Hospitalization, Other)
  Sender: FDA-Public Use
  Company Number: GB-ABBOTT-09P-167-0568073-00

PATIENT
  Age: 48 Year

DRUGS (13)
  1. KALETRA [Suspect]
     Indication: DRUG USE FOR UNKNOWN INDICATION
  2. EFAVIRENZ [Suspect]
     Indication: DRUG USE FOR UNKNOWN INDICATION
  3. DIDANOSINE [Suspect]
     Indication: DRUG USE FOR UNKNOWN INDICATION
  4. ACETYLSALICYLIC ACID SRT [Suspect]
     Indication: DRUG USE FOR UNKNOWN INDICATION
  5. STAVUDINE [Suspect]
     Indication: DRUG USE FOR UNKNOWN INDICATION
  6. TENOFOVIR [Suspect]
     Indication: DRUG USE FOR UNKNOWN INDICATION
  7. RAMIPRIL [Suspect]
     Indication: DRUG USE FOR UNKNOWN INDICATION
  8. ZIDOVUDINE [Suspect]
     Indication: DRUG USE FOR UNKNOWN INDICATION
  9. LAMIVUDINE [Suspect]
     Indication: DRUG USE FOR UNKNOWN INDICATION
  10. NELFINAVIR [Suspect]
     Indication: DRUG USE FOR UNKNOWN INDICATION
  11. ATORVASTATIN [Concomitant]
     Indication: DRUG USE FOR UNKNOWN INDICATION
  12. PRAVASTATIN [Concomitant]
     Indication: DRUG USE FOR UNKNOWN INDICATION
  13. OMEGA-3-ACID ETHYL ESTERS [Concomitant]
     Indication: DRUG USE FOR UNKNOWN INDICATION
     Dosage: 1-2 CAPSULES TWICE DAILY

REACTIONS (2)
  - DRUG RESISTANCE [None]
  - MYOCARDIAL INFARCTION [None]
